FAERS Safety Report 4673206-4 (Version None)
Quarter: 2005Q2

REPORT INFORMATION
  Report Type: 
  Country: None (occurrence: None)
  Receive Date: 20050525
  Receipt Date: 20050215
  Transmission Date: 20051028
  Serious: No
  Sender: FDA-Public Use
  Company Number: US-GLAXOSMITHKLINE-A0545689A

PATIENT

DRUGS (1)
  1. BACTROBAN [Suspect]
     Route: 065

REACTIONS (1)
  - EYE SWELLING [None]
